FAERS Safety Report 4681626-7 (Version None)
Quarter: 2005Q2

REPORT INFORMATION
  Report Type: 
  Country: None (occurrence: None)
  Receive Date: 20050602
  Receipt Date: 20050526
  Transmission Date: 20051028
  Serious: Yes (Other)
  Sender: FDA-Public Use
  Company Number: 2005-05-2128

PATIENT
  Age: 50 Year
  Sex: Female

DRUGS (2)
  1. CLARITIN-D [Suspect]
     Indication: SINUS CONGESTION
     Dosage: 1 Q 24H ORAL
     Route: 048
     Dates: start: 20050513, end: 20050514
  2. ASACOL [Concomitant]

REACTIONS (2)
  - COLITIS [None]
  - DISEASE RECURRENCE [None]
